FAERS Safety Report 14415473 (Version 1)
Quarter: 2018Q1

REPORT INFORMATION
  Report Type: Spontaneous
  Country: US (occurrence: US)
  Receive Date: 20180121
  Receipt Date: 20180121
  Transmission Date: 20180509
  Serious: Yes (Other)
  Sender: FDA-Public Use
  Company Number: US-BEH-2018086851

PATIENT
  Sex: Female
  Weight: 114.29 kg

DRUGS (2)
  1. HIZENTRA [Suspect]
     Active Substance: HUMAN IMMUNOGLOBULIN G
     Dosage: UNK
     Route: 058
  2. HIZENTRA [Suspect]
     Active Substance: HUMAN IMMUNOGLOBULIN G
     Indication: CONNECTIVE TISSUE DISORDER
     Dosage: 10 G, UNK
     Route: 058
     Dates: start: 20171127

REACTIONS (5)
  - Sinusitis [Unknown]
  - Brain neoplasm [Unknown]
  - Headache [Unknown]
  - Influenza [Unknown]
  - Central venous catheterisation [Unknown]
